FAERS Safety Report 9248550 (Version 1)
Quarter: 2013Q1

REPORT INFORMATION
  Report Type: Spontaneous
  Country: US (occurrence: None)
  Receive Date: 20121113
  Receipt Date: 20121113
  Transmission Date: 20140127
  Serious: Yes (Other)
  Sender: FDA-Public Use
  Company Number: PHEH2012US012286

PATIENT
  Age: 40 Year
  Sex: Female

DRUGS (1)
  1. TRILEPTAL [Suspect]
     Dates: start: 201007, end: 201205

REACTIONS (4)
  - Suicide attempt [None]
  - Middle insomnia [None]
  - Urinary incontinence [None]
  - Convulsion [None]
